FAERS Safety Report 22299638 (Version 1)
Quarter: 2023Q2

REPORT INFORMATION
  Report Type: Spontaneous
  Country: US (occurrence: None)
  Receive Date: 20230508
  Receipt Date: 20230508
  Transmission Date: 20230721
  Serious: Yes (Hospitalization)
  Sender: FDA-Public Use
  Company Number: None

PATIENT
  Sex: Male

DRUGS (1)
  1. NIVESTYM [Suspect]
     Active Substance: FILGRASTIM-AAFI
     Indication: Acute myeloid leukaemia
     Dosage: 0.16ML DAILY UNDER THE SKIN
     Route: 058
     Dates: start: 202304

REACTIONS (2)
  - Diarrhoea [None]
  - Dermatitis diaper [None]
